FAERS Safety Report 9357507 (Version 1)
Quarter: 2013Q2

REPORT INFORMATION
  Report Type: Report from Study
  Country: BR (occurrence: BR)
  Receive Date: 20130620
  Receipt Date: 20130620
  Transmission Date: 20140414
  Serious: Yes (Other)
  Sender: FDA-Public Use
  Company Number: PHHY2013BR045643

PATIENT
  Age: 56 Year
  Sex: Female
  Weight: 53 kg

DRUGS (5)
  1. ACLASTA [Suspect]
     Indication: OSTEOPOROSIS
     Dosage: 5 MG, ONCE A YEAR
     Route: 042
     Dates: start: 20120425
  2. ACLASTA [Suspect]
     Dosage: 5 MG, ONCE A YEAR
     Route: 042
     Dates: start: 20130425
  3. PRELONE [Concomitant]
     Dosage: UNK UKN, UNK
  4. ADDERA D3 [Concomitant]
     Dosage: UNK UKN, UNK
  5. OMEPRAZOLE [Concomitant]
     Indication: ABDOMINAL PAIN UPPER
     Dosage: 1 MG, 1 TABLET DAILY
     Route: 048
     Dates: start: 20120426

REACTIONS (9)
  - Depression [Recovering/Resolving]
  - Anxiety [Recovering/Resolving]
  - Gastrointestinal disorder [Recovering/Resolving]
  - Spinal pain [Recovering/Resolving]
  - Pain [Recovering/Resolving]
  - Nausea [Recovering/Resolving]
  - Chills [Recovering/Resolving]
  - Headache [Recovering/Resolving]
  - Decreased appetite [Recovering/Resolving]
